FAERS Safety Report 5138749-8 (Version None)
Quarter: 2006Q4

REPORT INFORMATION
  Report Type: 
  Country: None (occurrence: None)
  Receive Date: 20061030
  Receipt Date: 20061012
  Transmission Date: 20070319
  Serious: Yes (Hospitalization)
  Sender: FDA-Public Use
  Company Number: 2006UW19806

PATIENT
  Age: 72 Year
  Sex: Male

DRUGS (5)
  1. CRESTOR [Suspect]
     Route: 048
  2. ADVAIR DISKUS 100/50 [Concomitant]
  3. ZYPREXA [Concomitant]
  4. K-DUR 10 [Concomitant]
  5. VENTOLIN [Concomitant]

REACTIONS (3)
  - FALL [None]
  - LIVER DISORDER [None]
  - RHABDOMYOLYSIS [None]
